FAERS Safety Report 10223312 (Version 1)
Quarter: 2014Q2

REPORT INFORMATION
  Report Type: Spontaneous
  Country: SI (occurrence: SI)
  Receive Date: 20140609
  Receipt Date: 20140609
  Transmission Date: 20141212
  Serious: Yes (Other)
  Sender: FDA-Public Use
  Company Number: SI-AMGEN INC.-SVNSP2014042148

PATIENT
  Age: 71 Year
  Sex: Male

DRUGS (4)
  1. VECTIBIX [Suspect]
     Indication: RECTAL CANCER
     Dosage: 500 MG, UNK
     Route: 042
     Dates: start: 20140514, end: 20140522
  2. CARDURAXL [Concomitant]
     Dosage: UNK UNK, UNK
  3. LACIPIL [Concomitant]
     Dosage: UNK UNK, UNK
  4. CAPECITABINE [Concomitant]
     Dosage: UNK UNK, UNK

REACTIONS (1)
  - Dermatitis acneiform [Unknown]
